FAERS Safety Report 4269690-0 (Version None)
Quarter: 2004Q1

REPORT INFORMATION
  Report Type: 
  Country: None (occurrence: None)
  Receive Date: 20040112
  Receipt Date: 20040105
  Transmission Date: 20041129
  Serious: Yes (Hospitalization, Other)
  Sender: FDA-Public Use
  Company Number: 2004-01-0027

PATIENT
  Age: 62 Year
  Sex: Female
  Weight: 54 kg

DRUGS (2)
  1. CELESTAMINE TAB [Suspect]
     Indication: URTICARIA
     Dosage: ONE TABLET QD ORAL
     Route: 048
  2. DERMOVAL OINTMENT [Suspect]
     Indication: PSORIASIS
     Dosage: TRANSDERMAL
     Route: 062

REACTIONS (6)
  - ADRENAL INSUFFICIENCY [None]
  - AGITATION [None]
  - CIRRHOSIS ALCOHOLIC [None]
  - DELIRIUM [None]
  - DIABETES MELLITUS INADEQUATE CONTROL [None]
  - HEPATIC ENZYME INCREASED [None]
